FAERS Safety Report 9426565 (Version 1)
Quarter: 2013Q3

REPORT INFORMATION
  Report Type: Spontaneous
  Country: US (occurrence: US)
  Receive Date: 20130730
  Receipt Date: 20130730
  Transmission Date: 20140515
  Serious: No
  Sender: FDA-Public Use
  Company Number: US-PFIZER INC-2013217450

PATIENT
  Age: 82 Year
  Sex: Female

DRUGS (1)
  1. XALKORI [Suspect]
     Indication: LUNG NEOPLASM MALIGNANT
     Dosage: 200 MG, 2X/DAY (ONE CAPSULE TWICE DAILY)
     Dates: start: 201306

REACTIONS (3)
  - Dizziness [Recovering/Resolving]
  - Constipation [Recovering/Resolving]
  - Decreased appetite [Recovering/Resolving]
